FAERS Safety Report 7590430-1 (Version None)
Quarter: 2011Q3

REPORT INFORMATION
  Report Type: 
  Country: None (occurrence: None)
  Receive Date: 20110705
  Receipt Date: 20110627
  Transmission Date: 20111222
  Serious: Yes (Hospitalization)
  Sender: FDA-Public Use
  Company Number: CA-PFIZER INC-2010140120

PATIENT
  Age: 62 Year
  Sex: Male
  Weight: 78.458 kg

DRUGS (8)
  1. VALPROATE SODIUM [Suspect]
     Dosage: UNK
     Dates: start: 20101018
  2. DILANTIN [Suspect]
     Dosage: UNK
     Dates: start: 20101014, end: 20101018
  3. MEMANTINE [Concomitant]
     Dosage: UNK
     Route: 048
     Dates: start: 20100520
  4. PLACEBO [Suspect]
     Indication: DEMENTIA ALZHEIMER'S TYPE
     Dosage: EVERY 60 DAYS
     Route: 042
     Dates: start: 20090119, end: 20100719
  5. FLOMAX [Concomitant]
     Dosage: UNK
     Route: 048
     Dates: start: 20100826
  6. BLINDED NO SUBJECT DRUG [Suspect]
     Indication: DEMENTIA ALZHEIMER'S TYPE
     Dosage: EVERY 60 DAYS
     Route: 042
     Dates: start: 20090119, end: 20100719
  7. ZOLOFT [Concomitant]
     Dosage: UNK
     Route: 048
     Dates: start: 20100921
  8. BLINDED PF-04360365 [Suspect]
     Indication: DEMENTIA ALZHEIMER'S TYPE
     Dosage: EVERY 60 DAYS
     Route: 042
     Dates: start: 20090119, end: 20100719

REACTIONS (12)
  - GAIT DISTURBANCE [None]
  - DELIRIUM [None]
  - TREMOR [None]
  - HYPOTENSION [None]
  - CONVULSION [None]
  - HAEMOGLOBIN DECREASED [None]
  - FATIGUE [None]
  - URINARY INCONTINENCE [None]
  - ANAEMIA [None]
  - SYNCOPE [None]
  - AGITATION [None]
  - CONSTIPATION [None]
